FAERS Safety Report 9351257 (Version 1)
Quarter: 2013Q2

REPORT INFORMATION
  Report Type: Spontaneous
  Country: TN (occurrence: TN)
  Receive Date: 20130617
  Receipt Date: 20130617
  Transmission Date: 20140414
  Serious: Yes (Hospitalization)
  Sender: FDA-Public Use
  Company Number: PHHY2013TN059073

PATIENT
  Age: 41 Year
  Sex: Female

DRUGS (12)
  1. RIFAMPICIN [Suspect]
     Indication: SPLEEN TUBERCULOSIS
     Dosage: 600 MG PER DAY
  2. RIFAMPICIN [Suspect]
     Indication: TUBERCULOSIS LIVER
  3. RIFAMPICIN [Suspect]
     Indication: LYMPH NODE TUBERCULOSIS
  4. ISONIAZID [Suspect]
     Indication: TUBERCULOSIS LIVER
     Dosage: 250 MG PER DAY
  5. ISONIAZID [Suspect]
     Indication: SPLEEN TUBERCULOSIS
  6. ISONIAZID [Suspect]
     Indication: LYMPH NODE TUBERCULOSIS
  7. ETHAMBUTOL [Suspect]
     Indication: SPLEEN TUBERCULOSIS
     Dosage: 1200 MG PER DAY
  8. ETHAMBUTOL [Suspect]
     Indication: TUBERCULOSIS LIVER
  9. ETHAMBUTOL [Suspect]
     Indication: LYMPH NODE TUBERCULOSIS
  10. PYRAZINAMIDE [Suspect]
     Indication: SPLEEN TUBERCULOSIS
     Dosage: 1500 MG PER DAY
  11. PYRAZINAMIDE [Suspect]
     Indication: TUBERCULOSIS LIVER
  12. PYRAZINAMIDE [Suspect]
     Indication: LYMPH NODE TUBERCULOSIS

REACTIONS (6)
  - Drug reaction with eosinophilia and systemic symptoms [Recovered/Resolved]
  - Pyrexia [Recovered/Resolved]
  - Dyspnoea [Recovered/Resolved]
  - Chest pain [Recovered/Resolved]
  - Generalised oedema [Recovered/Resolved]
  - Rash maculo-papular [Recovered/Resolved]
